FAERS Safety Report 20104962 (Version 1)
Quarter: 2021Q4

REPORT INFORMATION
  Report Type: Report from Study
  Country: IL (occurrence: IL)
  Receive Date: 20211124
  Receipt Date: 20211124
  Transmission Date: 20220303
  Serious: Yes (Hospitalization)
  Sender: FDA-Public Use
  Company Number: IL-ABBVIE-20K-082-3584464-00

PATIENT
  Age: 66 Year
  Sex: Male

DRUGS (8)
  1. CARBIDOPA\LEVODOPA [Suspect]
     Active Substance: CARBIDOPA\LEVODOPA
     Indication: Parkinson^s disease
     Route: 050
     Dates: start: 20180702
  2. CARBIDOPA\LEVODOPA [Suspect]
     Active Substance: CARBIDOPA\LEVODOPA
     Route: 050
     Dates: end: 20200928
  3. CARBIDOPA\LEVODOPA [Suspect]
     Active Substance: CARBIDOPA\LEVODOPA
     Route: 050
     Dates: start: 20200928, end: 20200929
  4. CARBIDOPA\LEVODOPA [Suspect]
     Active Substance: CARBIDOPA\LEVODOPA
     Route: 050
     Dates: start: 20200929, end: 2020
  5. CARBIDOPA\LEVODOPA [Suspect]
     Active Substance: CARBIDOPA\LEVODOPA
     Dosage: MD(ML) 5.0, CD(ML/H) 4.5 , ED (ML) 2.0, NIGHT CD(ML/H) 4.5
     Route: 050
     Dates: start: 2020, end: 2020
  6. CARBIDOPA\LEVODOPA [Suspect]
     Active Substance: CARBIDOPA\LEVODOPA
     Dosage: MD(ML) 7.0, CD: 5.5(ML/H), ED: 2.0 (ML/HR) , NIGHT CD :4.5(ML/H); REMAINS 24 HRS
     Route: 050
     Dates: start: 2020, end: 2020
  7. CARBIDOPA\LEVODOPA [Suspect]
     Active Substance: CARBIDOPA\LEVODOPA
     Dosage: MD(ML) 7.0, CD: 5.5(ML/H), ED: 4.0 (ML) , NIGHT CD :4.5(ML/H); REMAINS 24 HRS
     Route: 050
     Dates: start: 2020
  8. CARBIDOPA\LEVODOPA [Suspect]
     Active Substance: CARBIDOPA\LEVODOPA
     Dosage: MD DECREASED FROM 7.0 TO 5.0 ML, CD RATE DECREASED FROM 5.5 TO 4.3 ML/HR, ED(ML) 4.0
     Route: 050
     Dates: start: 20201229

REACTIONS (17)
  - Nervous system disorder [Unknown]
  - Communication disorder [Not Recovered/Not Resolved]
  - Incorrect route of product administration [Recovered/Resolved]
  - Musculoskeletal stiffness [Recovering/Resolving]
  - Feeding disorder [Unknown]
  - Aggression [Unknown]
  - On and off phenomenon [Recovered/Resolved]
  - Hallucination [Unknown]
  - Confusional state [Unknown]
  - Dysphagia [Unknown]
  - Depressed mood [Unknown]
  - Device occlusion [Not Recovered/Not Resolved]
  - Dyskinesia [Unknown]
  - Device dislocation [Recovered/Resolved]
  - Incorrect route of product administration [Recovered/Resolved]
  - Incorrect route of product administration [Not Recovered/Not Resolved]
  - Device dislocation [Unknown]

NARRATIVE: CASE EVENT DATE: 20201011
